FAERS Safety Report 14261027 (Version 1)
Quarter: 2017Q4

REPORT INFORMATION
  Report Type: Spontaneous
  Country: GR (occurrence: GR)
  Receive Date: 20171207
  Receipt Date: 20171207
  Transmission Date: 20180321
  Serious: Yes (Other)
  Sender: FDA-Public Use
  Company Number: GR-TOLMAR, INC.-TOLG20170530

PATIENT
  Age: 49 Year
  Sex: Female

DRUGS (2)
  1. IMIQUIMOD. [Suspect]
     Active Substance: IMIQUIMOD
     Indication: BASAL CELL CARCINOMA
     Dosage: APPLIED
     Route: 061
  2. IMIQUIMOD. [Suspect]
     Active Substance: IMIQUIMOD
     Dosage: UNKNOWN
     Route: 061

REACTIONS (3)
  - Product use in unapproved indication [None]
  - Device dislocation [Recovered/Resolved]
  - Dermatitis [Recovered/Resolved]
